FAERS Safety Report 8788664 (Version 7)
Quarter: 2014Q2

REPORT INFORMATION
  Report Type: Report from Study
  Country: US (occurrence: US)
  Receive Date: 20120910
  Receipt Date: 20140421
  Transmission Date: 20141212
  Serious: Yes (Death, Life-Threatening, Hospitalization, Disabling)
  Sender: FDA-Public Use
  Company Number: PHHO2012US011879

PATIENT
  Age: 63 Year
  Sex: Male
  Weight: 62.77 kg

DRUGS (2)
  1. ACZ885 [Suspect]
     Indication: CARDIOVASCULAR EVENT PROPHYLAXIS
     Dosage: 150 MG, UNK
     Route: 048
     Dates: start: 20120724
  2. HEPARIN [Suspect]

REACTIONS (6)
  - Heparin-induced thrombocytopenia [Fatal]
  - Sepsis [Fatal]
  - Bacteraemia [Fatal]
  - Aortic valve incompetence [Fatal]
  - Respiratory failure [Fatal]
  - Renal failure [Fatal]
